FAERS Safety Report 4540853-X (Version None)
Quarter: 2004Q4

REPORT INFORMATION
  Report Type: 
  Country: None (occurrence: None)
  Receive Date: 20041229
  Receipt Date: 20041108
  Transmission Date: 20050328
  Serious: Yes (Hospitalization)
  Sender: FDA-Public Use
  Company Number: JP-BRISTOL-MYERS SQUIBB COMPANY-12763561

PATIENT
  Age: 75 Year
  Sex: Female

DRUGS (5)
  1. IFOMIDE [Suspect]
     Indication: CERVIX CARCINOMA
     Route: 041
     Dates: start: 20041013, end: 20041016
  2. UROMITEXAN [Suspect]
     Indication: CERVIX CARCINOMA
     Route: 041
     Dates: start: 20041013, end: 20041016
  3. PEPLEO [Suspect]
     Indication: CERVIX CARCINOMA
     Dosage: TWO TREATMENTS
     Route: 041
     Dates: start: 20041013, end: 20041016
  4. SOLU-CORTEF [Suspect]
     Indication: EXANTHEM
     Route: 041
     Dates: start: 20041015, end: 20041019
  5. AQUPLA [Suspect]
     Indication: CERVIX CARCINOMA
     Route: 041
     Dates: start: 20041013, end: 20041013

REACTIONS (3)
  - BLOOD PRESSURE SYSTOLIC INCREASED [None]
  - BONE MARROW DEPRESSION [None]
  - RASH PRURITIC [None]
